FAERS Safety Report 10562392 (Version 5)
Quarter: 2015Q1

REPORT INFORMATION
  Report Type: Report from Study
  Country: BR (occurrence: BR)
  Receive Date: 20141104
  Receipt Date: 20150128
  Transmission Date: 20150720
  Serious: Yes (Hospitalization, Other)
  Sender: FDA-Public Use
  Company Number: PHHY2014BR143072

PATIENT
  Age: 46 Year
  Sex: Male
  Weight: 105 kg

DRUGS (9)
  1. PURAN [Concomitant]
     Active Substance: LEVOTHYROXINE SODIUM
     Indication: HYPOTHYROIDISM
     Dosage: 1 DF, QD (IN 1 HOUR FASTING)
     Route: 048
     Dates: start: 2004
  2. PREDNISONE. [Concomitant]
     Active Substance: PREDNISONE
     Indication: PRODUCT USED FOR UNKNOWN INDICATION
     Dosage: 1 DF, QD
     Route: 048
     Dates: start: 2014
  3. BROMOPRIDA [Concomitant]
     Indication: ABDOMINAL DISCOMFORT
     Dosage: UNK
     Route: 065
     Dates: start: 201402, end: 201403
  4. SANDOSTATIN LAR DEPOT [Suspect]
     Active Substance: OCTREOTIDE ACETATE
     Dosage: 1 DF (30 MG), QMO
     Route: 030
     Dates: start: 20130909
  5. OMEPRAZOLE. [Concomitant]
     Active Substance: OMEPRAZOLE
     Indication: ABDOMINAL DISCOMFORT
     Dosage: UNK
     Route: 065
     Dates: start: 201402, end: 201403
  6. SANDOSTATIN LAR DEPOT [Suspect]
     Active Substance: OCTREOTIDE ACETATE
     Dosage: 1 DF (20 MG), QMO
     Route: 065
     Dates: end: 20130809
  7. SANDOSTATIN LAR DEPOT [Suspect]
     Active Substance: OCTREOTIDE ACETATE
     Indication: ACROMEGALY
     Dosage: 1 DF (10 MG), QMO
     Route: 065
     Dates: start: 20060920
  8. CABERGOLINE. [Suspect]
     Active Substance: CABERGOLINE
     Indication: ACROMEGALY
     Dosage: 1 DF (FROM MONDAY TO FRIDAY)
     Route: 065
  9. DURATESTON [Concomitant]
     Active Substance: TESTOSTERONE
     Indication: ERECTILE DYSFUNCTION
     Dosage: 1 DF (INJECTION), EVERY 21 DAYS
     Route: 030
     Dates: start: 1994

REACTIONS (9)
  - Seizure [Recovered/Resolved]
  - Gait disturbance [Recovered/Resolved]
  - Pneumonia aspiration [Recovered/Resolved]
  - Meningioma [Not Recovered/Not Resolved]
  - Hyperglycaemia [Recovered/Resolved]
  - Fall [Recovered/Resolved]
  - Pyrexia [Recovered/Resolved]
  - Cholelithiasis [Not Recovered/Not Resolved]
  - Lipase abnormal [Not Recovered/Not Resolved]

NARRATIVE: CASE EVENT DATE: 2011
